FAERS Safety Report 9308159 (Version 3)
Quarter: 2015Q1

REPORT INFORMATION
  Report Type: Spontaneous
  Country: US (occurrence: US)
  Receive Date: 20130524
  Receipt Date: 20150220
  Transmission Date: 20150721
  Serious: Yes (Life-Threatening, Disabling, Congenital Anomaly, Other)
  Sender: FDA-Public Use
  Company Number: US-PFIZER INC-2013157987

PATIENT
  Sex: Male

DRUGS (19)
  1. TUMS [Concomitant]
     Active Substance: CALCIUM CARBONATE
     Dosage: UNK
     Route: 064
  2. METHOCARBAMOL. [Concomitant]
     Active Substance: METHOCARBAMOL
     Indication: MUSCLE SPASMS
     Dosage: 100 MG, 3X/DAY
     Route: 064
     Dates: start: 20011023
  3. PHENERGAN [Concomitant]
     Active Substance: PROMETHAZINE HYDROCHLORIDE
     Dosage: 25 MG, 1X/DAY (ONE EVERY NIGHT)
     Route: 064
     Dates: start: 20020107
  4. METOCLOPRAMIDE. [Concomitant]
     Active Substance: METOCLOPRAMIDE
     Dosage: 10 MG, 1X/DAY (ONE TABLET 30 MINUTE PRIOR TO MEALS AT BEDTIME)
     Route: 064
     Dates: start: 20020221
  5. SUCRALFATE. [Concomitant]
     Active Substance: SUCRALFATE
     Dosage: 1 G, 1X/DAY (ONE TABLET PRIOR TO MEALS, AT BEDTIME)
     Route: 064
     Dates: start: 20020521, end: 20020617
  6. EFFEXOR XR [Suspect]
     Active Substance: VENLAFAXINE HYDROCHLORIDE
     Indication: DEPRESSION
     Dosage: 150 MG, DAILY
     Route: 064
     Dates: start: 200103, end: 20011023
  7. EFFEXOR XR [Suspect]
     Active Substance: VENLAFAXINE HYDROCHLORIDE
     Indication: STRESS
  8. ZOFRAN [Concomitant]
     Active Substance: ONDANSETRON HYDROCHLORIDE
     Dosage: 4 MG, 2X/DAY (8MG HALF TABLET, EVERY 12 HOURS)
     Route: 064
     Dates: start: 20020131
  9. HISTEX HC [Concomitant]
     Dosage: ONE OR TWO TEASPOONS, EVERY 4 HRS, AS NEEDED
     Route: 064
     Dates: start: 20020404
  10. METHYLDOPA. [Concomitant]
     Active Substance: METHYLDOPA
     Dosage: 350 MG, 3X/DAY
     Route: 064
     Dates: start: 20020415
  11. MACROBID [Concomitant]
     Active Substance: NITROFURANTOIN\NITROFURANTOIN MONOHYDRATE
     Dosage: 100 MG, 2X/DAY
     Route: 064
     Dates: start: 20020613
  12. TYLENOL [Concomitant]
     Active Substance: ACETAMINOPHEN
     Dosage: UNK
     Route: 064
  13. VENLAFAXINE HCL [Suspect]
     Active Substance: VENLAFAXINE HYDROCHLORIDE
     Indication: DEPRESSION
     Dosage: 150 MG, DAILY
     Route: 064
     Dates: start: 200103, end: 20011023
  14. ZOFRAN [Concomitant]
     Active Substance: ONDANSETRON HYDROCHLORIDE
     Dosage: 4 MG, 2X/DAY (8MG HALF TABLET, EVERY 12 HOURS)
     Route: 064
     Dates: start: 20020221
  15. METHYLDOPA. [Concomitant]
     Active Substance: METHYLDOPA
     Dosage: 500 MG, 3X/DAY
     Route: 064
     Dates: start: 20020517
  16. ZOLOFT [Concomitant]
     Active Substance: SERTRALINE HYDROCHLORIDE
     Indication: DEPRESSION
     Dosage: 150 MG, DAILY (100 MG, ONE AND HALF TABLET EVERY NIGHT AT BEDTIME)
     Route: 064
     Dates: start: 20020213
  17. VENLAFAXINE HCL [Suspect]
     Active Substance: VENLAFAXINE HYDROCHLORIDE
     Indication: STRESS
  18. GUAIFENESIN. [Concomitant]
     Active Substance: GUAIFENESIN
     Dosage: 120 MG, 2X/DAY
     Route: 064
     Dates: start: 20020401
  19. CEFALEXIN [Concomitant]
     Active Substance: CEPHALEXIN
     Dosage: 500 MG, 3X/DAY
     Route: 064
     Dates: start: 20020614

REACTIONS (14)
  - Congenital mitral valve stenosis [Unknown]
  - Hydrocephalus [Unknown]
  - Pulmonary vein stenosis [Unknown]
  - Superior mesenteric artery syndrome [Unknown]
  - Pulmonary haemorrhage [Unknown]
  - Premature baby [Unknown]
  - Vascular malformation [Unknown]
  - Hypoplastic left heart syndrome [Unknown]
  - Pulmonary hypoplasia [Unknown]
  - Congenital aortic stenosis [Unknown]
  - Brain injury [Unknown]
  - Hypotension [Unknown]
  - Maternal exposure during pregnancy [Unknown]
  - Congenital anomaly [Unknown]

NARRATIVE: CASE EVENT DATE: 2002
